FAERS Safety Report 10844788 (Version 1)
Quarter: 2015Q1

REPORT INFORMATION
  Report Type: Spontaneous
  Country: JP (occurrence: JP)
  Receive Date: 20150220
  Receipt Date: 20150220
  Transmission Date: 20150721
  Serious: Yes (Hospitalization)
  Sender: FDA-Public Use
  Company Number: JP-SA-2015SA016931

PATIENT
  Age: 40 Year
  Sex: Female

DRUGS (2)
  1. ELPLAT [Suspect]
     Active Substance: OXALIPLATIN
     Indication: COLON CANCER
     Route: 041
     Dates: start: 20121106, end: 20130428
  2. XELODA [Concomitant]
     Active Substance: CAPECITABINE
     Dates: start: 20121106, end: 20130428

REACTIONS (4)
  - Portal hypertension [Recovering/Resolving]
  - Ascites [Recovering/Resolving]
  - Varices oesophageal [Recovering/Resolving]
  - Gastrointestinal oedema [Recovering/Resolving]

NARRATIVE: CASE EVENT DATE: 20130510
